FAERS Safety Report 8988805 (Version 2)
Quarter: 2013Q1

REPORT INFORMATION
  Report Type: Spontaneous
  Country: US (occurrence: None)
  Receive Date: 20121220
  Receipt Date: 20121227
  Transmission Date: 20140127
  Serious: Yes (Other)
  Sender: FDA-Public Use
  Company Number: 2012MA014116

PATIENT
  Age: 52 Year
  Sex: Female

DRUGS (2)
  1. OXALIPLATIN FOR INJECTION [Suspect]
     Indication: COLON CANCER
  2. LEUCOVORIN [Suspect]
     Indication: COLON CANCER

REACTIONS (1)
  - Adverse event [None]
